FAERS Safety Report 10085026 (Version 2)
Quarter: 2014Q2

REPORT INFORMATION
  Report Type: Spontaneous
  Country: US (occurrence: US)
  Receive Date: 20140417
  Receipt Date: 20140526
  Transmission Date: 20141212
  Serious: No
  Sender: FDA-Public Use
  Company Number: US-B.I. PHARMACEUTICALS,INC./RIDGEFIELD-2014-BI-16163BP

PATIENT
  Age: 58 Year
  Sex: Female
  Weight: 47 kg

DRUGS (2)
  1. COMBIVENT [Suspect]
     Indication: CHRONIC OBSTRUCTIVE PULMONARY DISEASE
     Dosage: DOSE PER APPLICATION:20 MCG / 100 MCG; DAILY DOSE: 240MCG/ 1200 MCG
     Route: 055
     Dates: start: 201401, end: 201403
  2. COMBIVENT [Suspect]
     Dosage: DOSE PER APPLICATION:20 MCG / 100 MCG;
     Route: 055
     Dates: start: 201401, end: 201403

REACTIONS (2)
  - Prescribed overdose [Recovered/Resolved]
  - Product quality issue [Unknown]
